FAERS Safety Report 11892024 (Version 1)
Quarter: 2016Q1

REPORT INFORMATION
  Report Type: Spontaneous
  Country: US (occurrence: None)
  Receive Date: 20160105
  Receipt Date: 20160105
  Transmission Date: 20160526
  Serious: Yes (Life-Threatening, Hospitalization)
  Sender: FDA-Public Use
  Company Number: None

PATIENT
  Age: 40 Year
  Sex: Female
  Weight: 63.5 kg

DRUGS (2)
  1. ENBREL [Suspect]
     Active Substance: ETANERCEPT
     Indication: PSORIATIC ARTHROPATHY
     Dosage: 50 MG 2 X WEEKLY, 2 X PER WEEK, SUBCUTANEOUS INJECTIONS?
     Route: 058
     Dates: start: 20151120, end: 20151211
  2. ENBREL [Suspect]
     Active Substance: ETANERCEPT
     Indication: PSORIASIS
     Dosage: 50 MG 2 X WEEKLY, 2 X PER WEEK, SUBCUTANEOUS INJECTIONS?
     Route: 058
     Dates: start: 20151120, end: 20151211

REACTIONS (3)
  - Hypertension [None]
  - Acute febrile neutrophilic dermatosis [None]
  - Injection site vesicles [None]

NARRATIVE: CASE EVENT DATE: 20151218
